FAERS Safety Report 6901881-X (Version None)
Quarter: 2010Q3

REPORT INFORMATION
  Report Type: 
  Country: None (occurrence: None)
  Receive Date: 20100803
  Receipt Date: 20080328
  Transmission Date: 20110219
  Serious: No
  Sender: FDA-Public Use
  Company Number: US-PFIZER INC-2008018856

PATIENT
  Sex: Female
  Weight: 70.8 kg

DRUGS (1)
  1. LYRICA [Suspect]
     Indication: NEURITIS

REACTIONS (3)
  - DIZZINESS [None]
  - HEADACHE [None]
  - VOMITING [None]
